FAERS Safety Report 4712347-X (Version None)
Quarter: 2005Q3

REPORT INFORMATION
  Report Type: 
  Country: None (occurrence: None)
  Receive Date: 20050711
  Receipt Date: 20050628
  Transmission Date: 20060218
  Serious: Yes (Other)
  Sender: FDA-Public Use
  Company Number: 2005093657

PATIENT
  Age: 42 Year
  Sex: Male

DRUGS (2)
  1. VIAGRA [Suspect]
     Indication: ILL-DEFINED DISORDER
     Dosage: (100 MG, AS NECESSARY), ORAL
     Route: 048
     Dates: start: 20050101, end: 20050510
  2. DRUG USED IN DIABETES (DRUG USED IN DIABETES) [Concomitant]

REACTIONS (7)
  - BLOOD GLUCOSE INCREASED [None]
  - DRUG DOSE OMISSION [None]
  - HYPERTENSION [None]
  - RETINAL VASCULAR DISORDER [None]
  - STRESS [None]
  - VASCULAR RUPTURE [None]
  - VISUAL DISTURBANCE [None]
